FAERS Safety Report 8366246-5 (Version None)
Quarter: 2012Q2

REPORT INFORMATION
  Report Type: 
  Country: None (occurrence: None)
  Receive Date: 20120517
  Receipt Date: 20120510
  Transmission Date: 20120825
  Serious: Yes (Other)
  Sender: FDA-Public Use
  Company Number: PHHY2012EC033535

PATIENT
  Sex: Female

DRUGS (2)
  1. CALCIUM [Concomitant]
     Dosage: UNK UKN, UNK
  2. EXFORGE HCT [Suspect]
     Indication: HYPERTENSION
     Dosage: 1 DF (160/5/12.5 MG), DAILY
     Route: 048
     Dates: start: 20100101

REACTIONS (1)
  - BLADDER MALPOSITION ACQUIRED [None]
